FAERS Safety Report 16150623 (Version 1)
Quarter: 2019Q2

REPORT INFORMATION
  Report Type: Spontaneous
  Country: US (occurrence: US)
  Receive Date: 20190228
  Receipt Date: 20190228
  Transmission Date: 20190711
  Serious: No
  Sender: FDA-Public Use
  Company Number: None

PATIENT
  Age: 83 Year
  Sex: Male

DRUGS (1)
  1. ZYTIGA [Suspect]
     Active Substance: ABIRATERONE ACETATE
     Indication: PROSTATE CANCER
     Route: 048
     Dates: start: 20190127, end: 20190217

REACTIONS (4)
  - Peripheral swelling [None]
  - Pulmonary oedema [None]
  - Diarrhoea [None]
  - Dyspnoea [None]

NARRATIVE: CASE EVENT DATE: 20190221
